FAERS Safety Report 15258242 (Version 2)
Quarter: 2018Q4

REPORT INFORMATION
  Report Type: Report from Study
  Country: US (occurrence: US)
  Receive Date: 20180809
  Receipt Date: 20181119
  Transmission Date: 20190204
  Serious: Yes (Other)
  Sender: FDA-Public Use
  Company Number: US-ROCHE-2166027

PATIENT
  Sex: Female

DRUGS (4)
  1. CELLCEPT [Suspect]
     Active Substance: MYCOPHENOLATE MOFETIL\MYCOPHENOLATE MOFETIL HYDROCHLORIDE
     Indication: SYSTEMIC LUPUS ERYTHEMATOSUS
     Route: 048
  2. BENLYSTA [Concomitant]
     Active Substance: BELIMUMAB
  3. PLAQUENIL [Concomitant]
     Active Substance: HYDROXYCHLOROQUINE SULFATE
  4. CELLCEPT [Suspect]
     Active Substance: MYCOPHENOLATE MOFETIL\MYCOPHENOLATE MOFETIL HYDROCHLORIDE
     Dosage: 3 TABS BID
     Route: 048

REACTIONS (6)
  - Stomatitis [Unknown]
  - Intentional product use issue [Unknown]
  - Arthritis [Unknown]
  - Proteinuria [Unknown]
  - Off label use [Unknown]
  - Rash [Unknown]
